FAERS Safety Report 24663573 (Version 1)
Quarter: 2024Q4

REPORT INFORMATION
  Report Type: Spontaneous
  Country: US (occurrence: None)
  Receive Date: 20241126
  Receipt Date: 20241126
  Transmission Date: 20250115
  Serious: Yes (Other)
  Sender: AXSOME THERAPEUTICS, INC.
  Company Number: US-ARIS GLOBAL-AXS202311-001419

PATIENT
  Age: 68 Year
  Sex: Female

DRUGS (13)
  1. AUVELITY [Suspect]
     Active Substance: BUPROPION HYDROCHLORIDE\DEXTROMETHORPHAN HYDROBROMIDE
     Indication: Major depression
     Route: 065
     Dates: start: 202310
  2. AUVELITY [Suspect]
     Active Substance: BUPROPION HYDROCHLORIDE\DEXTROMETHORPHAN HYDROBROMIDE
     Route: 065
     Dates: start: 2023, end: 2023
  3. AUVELITY [Suspect]
     Active Substance: BUPROPION HYDROCHLORIDE\DEXTROMETHORPHAN HYDROBROMIDE
     Route: 065
     Dates: start: 2023, end: 2023
  4. AUVELITY [Suspect]
     Active Substance: BUPROPION HYDROCHLORIDE\DEXTROMETHORPHAN HYDROBROMIDE
     Route: 065
     Dates: start: 202311
  5. AUVELITY [Suspect]
     Active Substance: BUPROPION HYDROCHLORIDE\DEXTROMETHORPHAN HYDROBROMIDE
     Route: 065
     Dates: start: 20241011
  6. OZEMPIC [Suspect]
     Active Substance: SEMAGLUTIDE
     Indication: Prophylaxis
     Dosage: UNK
     Route: 065
  7. SYNTHROID [Concomitant]
     Active Substance: LEVOTHYROXINE SODIUM
     Indication: Hypothyroidism
     Dosage: UNK
     Route: 065
  8. LOSARTAN [Concomitant]
     Active Substance: LOSARTAN
     Indication: Glomerulonephritis
     Dosage: UNK
     Route: 065
  9. HYDROCODONE [Concomitant]
     Active Substance: HYDROCODONE
     Indication: Headache
     Dosage: UNK
     Route: 065
  10. TRAZODONE [Concomitant]
     Active Substance: TRAZODONE HYDROCHLORIDE
     Indication: Insomnia
     Route: 065
  11. STOOL SOFTENER (DOCUSATE) [Concomitant]
     Active Substance: DOCUSATE
     Indication: Faeces hard
     Dosage: UNK
     Route: 065
  12. ALBUTEROL [Concomitant]
     Active Substance: ALBUTEROL
     Indication: Hypersensitivity
     Dosage: UNK
     Route: 065
  13. HIZENTRA [Concomitant]
     Active Substance: HUMAN IMMUNOGLOBULIN G
     Indication: Hypogammaglobulinaemia
     Route: 058

REACTIONS (15)
  - Suicidal ideation [Recovering/Resolving]
  - Psychotic disorder [Recovering/Resolving]
  - Constipation [Recovering/Resolving]
  - Feeling abnormal [Recovering/Resolving]
  - Dissociation [Recovering/Resolving]
  - Mucosal dryness [Recovering/Resolving]
  - Akathisia [Recovering/Resolving]
  - Pupil fixed [Recovering/Resolving]
  - Headache [Not Recovered/Not Resolved]
  - Panic reaction [Recovering/Resolving]
  - Depression [Recovering/Resolving]
  - Extrapyramidal disorder [Recovering/Resolving]
  - Dry mouth [Recovering/Resolving]
  - Somnolence [Recovering/Resolving]
  - Off label use [Unknown]
